FAERS Safety Report 7693471-9 (Version None)
Quarter: 2011Q3

REPORT INFORMATION
  Report Type: 
  Country: None (occurrence: None)
  Receive Date: 20110815
  Receipt Date: 20110804
  Transmission Date: 20111222
  Serious: Yes (Other)
  Sender: FDA-Public Use
  Company Number: 2011SP036909

PATIENT
  Age: 27 Year
  Sex: Female
  Weight: 71 kg

DRUGS (2)
  1. NUVARING [Suspect]
     Indication: CONTRACEPTION
     Dosage: VAG; VAG
     Route: 067
     Dates: start: 20100801, end: 20110501
  2. NUVARING [Suspect]
     Indication: CONTRACEPTION
     Dosage: VAG; VAG
     Route: 067
     Dates: start: 20110728

REACTIONS (8)
  - ABDOMINAL PAIN [None]
  - UTERINE INJURY [None]
  - NAUSEA [None]
  - RETCHING [None]
  - HAEMORRHAGE [None]
  - ABDOMINAL PAIN UPPER [None]
  - SKIN DISORDER [None]
  - OEDEMA PERIPHERAL [None]
